FAERS Safety Report 8792928 (Version 2)
Quarter: 2012Q4

REPORT INFORMATION
  Report Type: 
  Country: US (occurrence: US)
  Receive Date: 20120918
  Receipt Date: 20121213
  Transmission Date: 20130627
  Serious: No
  Sender: FDA-Public Use
  Company Number: US-PFIZER INC-2012228403

PATIENT
  Age: 65 Year
  Sex: Male
  Weight: 97.51 kg

DRUGS (4)
  1. LYRICA [Suspect]
     Indication: MULTIPLE SCLEROSIS
     Dosage: 150 mg, 3x/day
     Route: 048
     Dates: end: 201209
  2. TESTOSTERONE CIPIONATE [Suspect]
     Indication: ENERGY DECREASED
     Dosage: UNK
  3. TESTOSTERONE CIPIONATE [Suspect]
     Indication: TESTOSTERONE LOW
  4. NORVASC [Concomitant]
     Dosage: UNK

REACTIONS (4)
  - Off label use [Unknown]
  - Drug ineffective for unapproved indication [Unknown]
  - Weight increased [Unknown]
  - Insomnia [Unknown]
